FAERS Safety Report 6668059-9 (Version None)
Quarter: 2010Q2

REPORT INFORMATION
  Report Type: 
  Country: None (occurrence: None)
  Receive Date: 20100405
  Receipt Date: 20100327
  Transmission Date: 20101027
  Serious: Yes (Hospitalization, Other)
  Sender: FDA-Public Use
  Company Number: US-AMGEN-QUU402371

PATIENT
  Sex: Female

DRUGS (1)
  1. ENBREL [Suspect]
     Indication: PSORIASIS
     Route: 058
     Dates: start: 20050101

REACTIONS (14)
  - ACNE [None]
  - BREAST MASS [None]
  - DYSSTASIA [None]
  - EAR INFECTION [None]
  - FATIGUE [None]
  - HEADACHE [None]
  - INSOMNIA [None]
  - INTERVERTEBRAL DISC PROTRUSION [None]
  - LABOUR INDUCTION [None]
  - PAIN [None]
  - POLLAKIURIA [None]
  - PROLONGED LABOUR [None]
  - RASH PUSTULAR [None]
  - SINUSITIS [None]
